FAERS Safety Report 11480570 (Version 1)
Quarter: 2015Q3

REPORT INFORMATION
  Report Type: Spontaneous
  Country: US (occurrence: None)
  Receive Date: 20150909
  Receipt Date: 20150909
  Transmission Date: 20151125
  Serious: Yes (Other)
  Sender: FDA-Public Use
  Company Number: ADR-2014-02238

PATIENT
  Sex: Female

DRUGS (2)
  1. LIORESAL [Suspect]
     Active Substance: BACLOFEN
     Dosage: 616.5 MCG/DAY
  2. GABLOFEN [Suspect]
     Active Substance: BACLOFEN
     Dosage: 616.5 MCG/DAY

REACTIONS (5)
  - Disease progression [None]
  - Muscle spasms [None]
  - Unevaluable event [None]
  - Gait disturbance [None]
  - Muscle spasticity [None]
